FAERS Safety Report 18671904 (Version 2)
Quarter: 2020Q4

REPORT INFORMATION
  Report Type: Spontaneous
  Country: ES (occurrence: ES)
  Receive Date: 20201228
  Receipt Date: 20201231
  Transmission Date: 20210114
  Serious: Yes (Other)
  Sender: FDA-Public Use
  Company Number: NVSC2020ES227896

PATIENT
  Age: 23 Year
  Sex: Female

DRUGS (5)
  1. INTERFERON ALFA NOS [Suspect]
     Active Substance: INTERFERON ALFA-2A OR INTERFERON ALFA-2B
     Indication: CHRONIC MYELOID LEUKAEMIA
     Dosage: 4.5 INTO 10E6 UI/DAY
     Route: 065
     Dates: end: 20150629
  2. IMATINIB. [Suspect]
     Active Substance: IMATINIB MESYLATE
     Dosage: 600 MG, QD
     Route: 065
     Dates: start: 201106, end: 201401
  3. IMATINIB. [Suspect]
     Active Substance: IMATINIB MESYLATE
     Indication: CHRONIC MYELOID LEUKAEMIA
     Dosage: 400 MG, QD
     Route: 065
     Dates: start: 200709, end: 201106
  4. INTERFERON ALFA NOS [Suspect]
     Active Substance: INTERFERON ALFA-2A OR INTERFERON ALFA-2B
     Dosage: 4.5 INTO 10E6 UI/48 HOURS
     Route: 065
  5. FOLLITROPIN ALFA [Concomitant]
     Active Substance: FOLLITROPIN
     Indication: INFERTILITY FEMALE
     Dosage: UNK
     Route: 065

REACTIONS (10)
  - Haemorrhage [Unknown]
  - Haemorrhagic ovarian cyst [Unknown]
  - Haemorrhagic ovarian cyst [Unknown]
  - Gastrointestinal toxicity [Unknown]
  - Weight increased [Unknown]
  - Haemorrhagic ovarian cyst [Unknown]
  - Periorbital oedema [Unknown]
  - Haemorrhagic disorder [Unknown]
  - Neutropenia [Unknown]
  - Therapeutic response decreased [Unknown]

NARRATIVE: CASE EVENT DATE: 201110
